FAERS Safety Report 8385236 (Version 3)
Quarter: 2015Q1

REPORT INFORMATION
  Report Type: Report from Study
  Country: AU (occurrence: AU)
  Receive Date: 20120202
  Receipt Date: 20150316
  Transmission Date: 20150721
  Serious: Yes (Hospitalization)
  Sender: FDA-Public Use
  Company Number: AU-ROCHE-1034616

PATIENT
  Age: 66 Year
  Sex: Male
  Weight: 75 kg

DRUGS (3)
  1. ACTEMRA [Suspect]
     Active Substance: TOCILIZUMAB
     Indication: RHEUMATOID ARTHRITIS
     Dosage: DOSE: 8 MG/KG
     Route: 042
     Dates: start: 20100918
  2. METHOTREXATE [Concomitant]
     Active Substance: METHOTREXATE
  3. PREDNISONE. [Concomitant]
     Active Substance: PREDNISONE

REACTIONS (3)
  - Arthralgia [Not Recovered/Not Resolved]
  - Hip fracture [Recovering/Resolving]
  - Lower respiratory tract infection [Recovering/Resolving]

NARRATIVE: CASE EVENT DATE: 201201
